FAERS Safety Report 9068249 (Version 2)
Quarter: 2013Q2

REPORT INFORMATION
  Report Type: Report from Study
  Country: US (occurrence: US)
  Receive Date: 20130128
  Receipt Date: 20130415
  Transmission Date: 20140414
  Serious: Yes (Hospitalization)
  Sender: FDA-Public Use
  Company Number: US-ROCHE-1183259

PATIENT
  Age: 54 Year
  Sex: Male

DRUGS (12)
  1. RITUXIMAB [Suspect]
     Indication: NON-HODGKIN^S LYMPHOMA
     Dosage: DATE OF LAST DOSE: 17/OCT/2011.
     Route: 042
     Dates: start: 20110523
  2. GS-1101 [Suspect]
     Indication: NON-HODGKIN^S LYMPHOMA
     Dosage: DATE OF LAST DOSE: 15/JAN/2012.
     Route: 048
     Dates: start: 20110523, end: 20120115
  3. BENDAMUSTINE [Suspect]
     Indication: NON-HODGKIN^S LYMPHOMA
     Dosage: DATE OF LAST DOSE: 18/OCT/2011.
     Route: 065
     Dates: start: 20110523
  4. KLOR-CON [Concomitant]
     Route: 065
     Dates: start: 20080820
  5. LASIX [Concomitant]
     Route: 065
     Dates: start: 20080820
  6. LISINOPRIL [Concomitant]
     Route: 065
     Dates: start: 20080820
  7. LOVENOX [Concomitant]
     Route: 065
     Dates: start: 20080820
  8. ALOXI [Concomitant]
     Route: 065
     Dates: start: 20110523
  9. VALTREX [Concomitant]
  10. POTASSIUM CHLORIDE [Concomitant]
     Route: 065
     Dates: start: 20110908
  11. LEVAQUIN [Concomitant]
     Route: 065
     Dates: start: 20110908
  12. ASPIRIN [Concomitant]
     Route: 065
     Dates: start: 20111007

REACTIONS (1)
  - Large intestinal ulcer [Recovered/Resolved]
